FAERS Safety Report 6218824-7 (Version None)
Quarter: 2009Q2

REPORT INFORMATION
  Report Type: 
  Country: None (occurrence: None)
  Receive Date: 20090608
  Receipt Date: 20090525
  Transmission Date: 20091009
  Serious: Yes (Death, Other)
  Sender: FDA-Public Use
  Company Number: NL-ELI_LILLY_AND_COMPANY-NL200905000522

PATIENT
  Age: 91 Year
  Sex: Female
  Weight: 70 kg

DRUGS (7)
  1. CYMBALTA [Suspect]
     Indication: ANXIETY
     Dosage: UNK, UNKNOWN
     Route: 065
     Dates: start: 20090225
  2. DIGOXIN [Concomitant]
     Dosage: 0.25 D/F, UNKNOWN
     Route: 065
  3. ASPIRIN [Concomitant]
     Dosage: 80 D/F, UNKNOWN
     Route: 065
  4. METOPROLOL SUCCINATE [Concomitant]
     Dosage: 100 D/F, UNKNOWN
     Route: 065
  5. CALCI CHEW D3                      /00944201/ [Concomitant]
     Dosage: UNK, UNKNOWN
     Route: 065
  6. VITAMIN D [Concomitant]
     Dosage: UNK, UNKNOWN
     Route: 065
  7. PARACETAMOL [Concomitant]
     Dosage: UNK, UNKNOWN
     Route: 065

REACTIONS (4)
  - DEATH [None]
  - HEPATIC ENZYME INCREASED [None]
  - JAUNDICE [None]
  - PANCREATIC ENZYMES INCREASED [None]
